FAERS Safety Report 9447407 (Version 1)
Quarter: 2013Q3

REPORT INFORMATION
  Report Type: Report from Study
  Country: US (occurrence: US)
  Receive Date: 20130808
  Receipt Date: 20130808
  Transmission Date: 20140515
  Serious: Yes (Life-Threatening, Hospitalization)
  Sender: FDA-Public Use
  Company Number: US-009507513-1308USA003038

PATIENT
  Age: 27 Year
  Sex: Female

DRUGS (2)
  1. NUVARING [Suspect]
     Indication: CONTRACEPTION
     Dosage: ENG 120 ?G/EE 15 ?G PER 24 HOUR
     Route: 067
     Dates: start: 200903, end: 201005
  2. BENICAR [Concomitant]

REACTIONS (1)
  - Deep vein thrombosis [Unknown]
